FAERS Safety Report 15144306 (Version 1)
Quarter: 2018Q3

REPORT INFORMATION
  Report Type: Spontaneous
  Country: US (occurrence: US)
  Receive Date: 20180713
  Receipt Date: 20180713
  Transmission Date: 20181010
  Serious: No
  Sender: FDA-Public Use
  Company Number: US-PERRIGO-17US031966

PATIENT
  Age: 67 Year
  Sex: Female
  Weight: 58.96 kg

DRUGS (5)
  1. MINOXIDIL. [Suspect]
     Active Substance: MINOXIDIL
     Dosage: 1 ML, QD
     Route: 061
     Dates: start: 201601, end: 201603
  2. MINOXIDIL. [Suspect]
     Active Substance: MINOXIDIL
     Dosage: 1 ML QD PRN
     Route: 061
     Dates: start: 201603, end: 201607
  3. MINOXIDIL. [Suspect]
     Active Substance: MINOXIDIL
     Dosage: 1 ML, QD
     Route: 061
     Dates: start: 201705, end: 201708
  4. MINOXIDIL. [Suspect]
     Active Substance: MINOXIDIL
     Indication: ALOPECIA
     Dosage: 1 ML, BID
     Route: 061
     Dates: start: 201501, end: 201511
  5. HORMONES [Concomitant]
     Active Substance: UNSPECIFIED INGREDIENT
     Indication: HORMONE REPLACEMENT THERAPY
     Dosage: UNK
     Route: 065
     Dates: start: 201707

REACTIONS (5)
  - Application site dryness [Recovered/Resolved]
  - Alopecia [Recovering/Resolving]
  - Application site pruritus [Recovered/Resolved]
  - Drug ineffective [Unknown]
  - Off label use [Recovered/Resolved]

NARRATIVE: CASE EVENT DATE: 201501
